FAERS Safety Report 7554079-9 (Version None)
Quarter: 2011Q2

REPORT INFORMATION
  Report Type: 
  Country: None (occurrence: None)
  Receive Date: 20110617
  Receipt Date: 20110531
  Transmission Date: 20111010
  Serious: No
  Sender: FDA-Public Use
  Company Number: US-B.I. PHARMACEUTICALS,INC./RIDGEFIELD-2011-BP-10766BP

PATIENT
  Age: 52 Year
  Sex: Male
  Weight: 95.25 kg

DRUGS (8)
  1. HYDROCHLOROTHIAZIDE [Concomitant]
     Dosage: 25 MG
  2. DIGOXIN [Concomitant]
     Dosage: 0.25 MG
  3. METFORMIN HCL [Concomitant]
     Dosage: 2000 MG
  4. ASPIRIN [Concomitant]
     Dosage: 325 MG
  5. GLIMEPIRIDE [Concomitant]
     Dosage: 25 MG
  6. LISINOPRIL [Concomitant]
     Dosage: 20 MG
  7. PRADAXA [Suspect]
     Indication: ATRIAL FIBRILLATION
     Dosage: 300 MG
     Route: 048
     Dates: start: 20110329, end: 20110407
  8. DILTIAZEM [Concomitant]
     Dosage: 480 MG

REACTIONS (2)
  - GINGIVAL PAIN [None]
  - CHEILITIS [None]
